FAERS Safety Report 4601086-1 (Version None)
Quarter: 2005Q1

REPORT INFORMATION
  Report Type: 
  Country: None (occurrence: None)
  Receive Date: 20050308
  Receipt Date: 20050224
  Transmission Date: 20050727
  Serious: Yes (Hospitalization)
  Sender: FDA-Public Use
  Company Number: JP-JNJFOC-20041202087

PATIENT
  Sex: Female

DRUGS (3)
  1. REMICADE [Suspect]
     Indication: RHEUMATOID ARTHRITIS
     Dosage: 9TH INFUSION
     Route: 042
  2. PREDONINE [Concomitant]
  3. RHEUMATREX [Concomitant]

REACTIONS (3)
  - ASCITES [None]
  - PLEURAL EFFUSION [None]
  - TUBERCULOSIS [None]
